FAERS Safety Report 6934530-5 (Version None)
Quarter: 2010Q3

REPORT INFORMATION
  Report Type: 
  Country: None (occurrence: None)
  Receive Date: 20100820
  Receipt Date: 20100811
  Transmission Date: 20110219
  Serious: Yes (Other)
  Sender: FDA-Public Use
  Company Number: FR-JNJCH-2010018540

PATIENT
  Sex: Female

DRUGS (5)
  1. ACTIFED [Suspect]
     Indication: LOWER RESPIRATORY TRACT INFECTION
     Dosage: TEXT:FOUR TABLETS UNSPECIFIED
     Route: 048
     Dates: start: 20100607, end: 20100609
  2. ACTIFED [Suspect]
     Indication: LOWER RESPIRATORY TRACT INFECTION
     Dosage: TEXT:ONE NIGHT TABLET
     Route: 048
     Dates: start: 20100609, end: 20100609
  3. LERCANIDIPINE [Concomitant]
     Indication: PRODUCT USED FOR UNKNOWN INDICATION
     Route: 048
  4. BIPRETERAX [Concomitant]
     Indication: PRODUCT USED FOR UNKNOWN INDICATION
     Dosage: TEXT:5 MG/1.25 MG ONE TABLET PER DAY
     Route: 048
  5. METFORMINE ^MERCK^ [Concomitant]
     Indication: PRODUCT USED FOR UNKNOWN INDICATION
     Dosage: TEXT:TWO TABLETS PER DAY
     Route: 048

REACTIONS (4)
  - BODY TEMPERATURE INCREASED [None]
  - HYPERHIDROSIS [None]
  - HYPERTENSION [None]
  - SINUS TACHYCARDIA [None]
